FAERS Safety Report 9335441 (Version 1)
Quarter: 2013Q2

REPORT INFORMATION
  Report Type: Spontaneous
  Country: CN (occurrence: CN)
  Receive Date: 20130605
  Receipt Date: 20130605
  Transmission Date: 20140414
  Serious: Yes (Other)
  Sender: FDA-Public Use
  Company Number: CN-ASTRAZENECA-2013SE40106

PATIENT
  Age: 77 Year
  Sex: Female

DRUGS (2)
  1. NEXIUM [Suspect]
     Indication: GASTRITIS EROSIVE
     Route: 048
     Dates: start: 20120825, end: 20120829
  2. ANTIHYPERTENSIVES [Concomitant]

REACTIONS (4)
  - Haematochezia [Unknown]
  - Abdominal distension [Unknown]
  - Diarrhoea [Unknown]
  - Intentional drug misuse [Unknown]
